FAERS Safety Report 18999594 (Version 2)
Quarter: 2021Q1

REPORT INFORMATION
  Report Type: Spontaneous
  Country: US (occurrence: US)
  Receive Date: 20210311
  Receipt Date: 20210315
  Transmission Date: 20210420
  Serious: No
  Sender: FDA-Public Use
  Company Number: US-BAYER-2021-102915

PATIENT
  Age: 69 Year
  Sex: Female

DRUGS (5)
  1. CHOLESTEROL CARE [Concomitant]
  2. CLIMARA [Suspect]
     Active Substance: ESTRADIOL
     Dosage: UNK, OW
     Route: 062
  3. CLIMARA [Suspect]
     Active Substance: ESTRADIOL
     Dosage: UNK, OW
     Route: 062
  4. ASTHMA?SPRAY [Concomitant]
  5. PROGESTERONE. [Concomitant]
     Active Substance: PROGESTERONE

REACTIONS (4)
  - Hot flush [None]
  - Blood cholesterol increased [None]
  - Device material issue [None]
  - Product adhesion issue [None]
